FAERS Safety Report 4471637-9 (Version None)
Quarter: 2004Q4

REPORT INFORMATION
  Report Type: 
  Country: None (occurrence: None)
  Receive Date: 20041012
  Receipt Date: 20041004
  Transmission Date: 20050328
  Serious: Yes (Other)
  Sender: FDA-Public Use
  Company Number: JP-BRISTOL-MYERS SQUIBB COMPANY-12725784

PATIENT
  Age: 56 Year
  Sex: Male

DRUGS (3)
  1. ENDOXAN [Suspect]
     Indication: KIDNEY TRANSPLANT REJECTION
     Dates: start: 20030401
  2. STEROIDS [Concomitant]
  3. PLASMA [Concomitant]

REACTIONS (1)
  - HEPATITIS FULMINANT [None]
